FAERS Safety Report 5843987-2 (Version None)
Quarter: 2008Q3

REPORT INFORMATION
  Report Type: 
  Country: None (occurrence: None)
  Receive Date: 20080808
  Receipt Date: 20080801
  Transmission Date: 20090109
  Serious: Yes (Disabling)
  Sender: FDA-Public Use
  Company Number: 002564

PATIENT
  Age: 31 Year
  Sex: Male

DRUGS (9)
  1. BUSULFEX [Suspect]
     Indication: STEM CELL TRANSPLANT
     Dosage: 45 MG; 180 MG; INTRAVENOUS
     Route: 042
     Dates: start: 20080709, end: 20080709
  2. BUSULFEX [Suspect]
     Indication: STEM CELL TRANSPLANT
     Dosage: 45 MG; 180 MG; INTRAVENOUS
     Route: 042
     Dates: start: 20080710, end: 20080710
  3. CYCLOSPORINE [Suspect]
     Dosage: 80 MG; 65 MG, INTRAVENOUS
     Route: 042
     Dates: start: 20080716, end: 20080717
  4. CYCLOSPORINE [Suspect]
     Dosage: 80 MG; 65 MG, INTRAVENOUS
     Route: 042
     Dates: start: 20080718
  5. FLUDARABINE PHOSPHATE [Suspect]
     Dosage: 50 MG; INTRAVENOUS
     Route: 042
     Dates: start: 20080707, end: 20080712
  6. PHENYTOIN SODIUM [Suspect]
     Dosage: 1500 MG, INTRAVENOUS
     Route: 042
     Dates: start: 20080709, end: 20080711
  7. MEROPENEM TRIHYDRATE (MEROPENEM TRIHYDRATE) [Concomitant]
  8. METHYLPREDNISOLONE [Concomitant]
  9. PENTAMIDINE ISETHIONATE [Concomitant]

REACTIONS (9)
  - ALANINE AMINOTRANSFERASE INCREASED [None]
  - ASPARTATE AMINOTRANSFERASE INCREASED [None]
  - BLOOD ALKALINE PHOSPHATASE INCREASED [None]
  - BLOOD LACTATE DEHYDROGENASE INCREASED [None]
  - CONDITION AGGRAVATED [None]
  - GAMMA-GLUTAMYLTRANSFERASE INCREASED [None]
  - HISTIOCYTOSIS HAEMATOPHAGIC [None]
  - HYPERBILIRUBINAEMIA [None]
  - LIVER DISORDER [None]
